FAERS Safety Report 18176275 (Version 1)
Quarter: 2020Q3

REPORT INFORMATION
  Report Type: Spontaneous
  Country: JP (occurrence: JP)
  Receive Date: 20200820
  Receipt Date: 20200820
  Transmission Date: 20201103
  Serious: Yes (Death)
  Sender: FDA-Public Use
  Company Number: JP-UCBSA-2020032330

PATIENT
  Age: 8 Decade
  Sex: Male

DRUGS (2)
  1. E KEPPRA [Suspect]
     Active Substance: LEVETIRACETAM
     Indication: EPILEPSY
     Dosage: 500MG DAILY
     Route: 048
  2. E KEPPRA [Suspect]
     Active Substance: LEVETIRACETAM
     Dosage: 250MG DAILY
     Route: 048

REACTIONS (4)
  - Physical deconditioning [Not Recovered/Not Resolved]
  - Completed suicide [Fatal]
  - Abdominal pain [Not Recovered/Not Resolved]
  - Depressed mood [Not Recovered/Not Resolved]
